FAERS Safety Report 10223462 (Version 1)
Quarter: 2014Q2

REPORT INFORMATION
  Report Type: Spontaneous
  Country: US (occurrence: None)
  Receive Date: 20140606
  Receipt Date: 20140606
  Transmission Date: 20141212
  Serious: Yes (Hospitalization)
  Sender: FDA-Public Use
  Company Number: None

PATIENT
  Age: 59 Year
  Sex: Male
  Weight: 107 kg

DRUGS (4)
  1. LEVETIRACETAM [Suspect]
     Indication: CONVULSION PROPHYLAXIS
     Dosage: 750 MG (1 500 MG AND 1 250 MG) BID ORAL
     Route: 048
     Dates: start: 20140226, end: 20140329
  2. LEVOTHYROXINE [Concomitant]
  3. OMEPRAZOLE [Concomitant]
  4. OCUVITE [Concomitant]

REACTIONS (4)
  - Hypoxia [None]
  - Dyspnoea exertional [None]
  - Eosinophil count increased [None]
  - Drug reaction with eosinophilia and systemic symptoms [None]
